FAERS Safety Report 8743982 (Version 7)
Quarter: 2014Q2

REPORT INFORMATION
  Report Type: Spontaneous
  Country: CA (occurrence: CA)
  Receive Date: 20120824
  Receipt Date: 20140411
  Transmission Date: 20141212
  Serious: Yes (Other)
  Sender: FDA-Public Use
  Company Number: CA-ROCHE-1103093

PATIENT
  Age: 12 Year
  Sex: Male

DRUGS (7)
  1. XOLAIR [Suspect]
     Indication: ASTHMA
     Route: 058
     Dates: start: 20120517
  2. XOLAIR [Suspect]
     Route: 058
     Dates: start: 20121105
  3. XOLAIR [Suspect]
     Route: 058
     Dates: start: 20130904
  4. XOLAIR [Suspect]
     Route: 058
  5. ZENHALE [Concomitant]
  6. SINGULAIR [Concomitant]
  7. VENTOLIN [Concomitant]

REACTIONS (11)
  - Arthropod sting [Recovered/Resolved]
  - Throat tightness [Recovered/Resolved]
  - Dysphagia [Unknown]
  - Nausea [Unknown]
  - Malaise [Unknown]
  - Vomiting [Recovered/Resolved]
  - Pyrexia [Not Recovered/Not Resolved]
  - Pain [Not Recovered/Not Resolved]
  - Hypophagia [Unknown]
  - Eosinophilic oesophagitis [Unknown]
  - Oesophageal ulcer [Unknown]
